FAERS Safety Report 20324779 (Version 2)
Quarter: 2022Q2

REPORT INFORMATION
  Report Type: Spontaneous
  Country: US (occurrence: US)
  Receive Date: 20220111
  Receipt Date: 20220414
  Transmission Date: 20220721
  Serious: No
  Sender: FDA-Public Use
  Company Number: US-MYOVANT SCIENCES GMBH-2021MYSCI1100601

PATIENT
  Sex: Male

DRUGS (2)
  1. ORGOVYX [Suspect]
     Active Substance: RELUGOLIX
     Indication: Prostate cancer
     Dosage: 360 MILLIGRAM, ONE TIME DOSE
     Route: 048
     Dates: start: 202110, end: 202110
  2. ORGOVYX [Suspect]
     Active Substance: RELUGOLIX
     Dosage: 120 MILLIGRAM, QD
     Route: 048
     Dates: start: 202110, end: 20211201

REACTIONS (7)
  - Weight increased [Not Recovered/Not Resolved]
  - Fatigue [Unknown]
  - Gynaecomastia [Unknown]
  - Hot flush [Recovered/Resolved]
  - Dysuria [Unknown]
  - Urinary tract infection [Unknown]
  - Therapy interrupted [Not Recovered/Not Resolved]
